FAERS Safety Report 24438279 (Version 1)
Quarter: 2024Q4

REPORT INFORMATION
  Report Type: Spontaneous
  Country: US (occurrence: US)
  Receive Date: 20241015
  Receipt Date: 20241015
  Transmission Date: 20250115
  Serious: No
  Sender: ABBVIE
  Company Number: US-ABBVIE-5955031

PATIENT

DRUGS (1)
  1. HUMIRA [Suspect]
     Active Substance: ADALIMUMAB
     Indication: Retinitis
     Dosage: DOSAGE: 40 MG/ML 40 MG/ 0.4 ML
     Route: 058

REACTIONS (1)
  - Off label use [Unknown]
